FAERS Safety Report 4877364-8 (Version None)
Quarter: 2006Q1

REPORT INFORMATION
  Report Type: 
  Country: None (occurrence: None)
  Receive Date: 20060109
  Receipt Date: 20051222
  Transmission Date: 20060701
  Serious: Yes (Other)
  Sender: FDA-Public Use
  Company Number: 430003L05DEU

PATIENT
  Age: 56 Year

DRUGS (2)
  1. MITOXANTRONE [Suspect]
     Indication: DISEASE PROGRESSION
     Dosage: 12 MG/M2, 6 IN 6 CYCLE, INTRAVENOUS (NOT OHTERWISE SPECIFIED)
     Route: 042
     Dates: start: 19980901, end: 19990512
  2. MITOXANTRONE [Suspect]
     Indication: MULTIPLE SCLEROSIS
     Dosage: 12 MG/M2, 6 IN 6 CYCLE, INTRAVENOUS (NOT OHTERWISE SPECIFIED)
     Route: 042
     Dates: start: 19980901, end: 19990512

REACTIONS (10)
  - AORTIC VALVE INCOMPETENCE [None]
  - AORTIC VALVE STENOSIS [None]
  - CARDIAC FAILURE [None]
  - DILATATION ATRIAL [None]
  - DILATATION VENTRICULAR [None]
  - MITRAL VALVE INCOMPETENCE [None]
  - PULMONARY HYPERTENSION [None]
  - SINUS TACHYCARDIA [None]
  - TRICUSPID VALVE INCOMPETENCE [None]
  - VENTRICULAR DYSFUNCTION [None]
